FAERS Safety Report 21816507 (Version 1)
Quarter: 2023Q1

REPORT INFORMATION
  Report Type: Spontaneous
  Country: US (occurrence: None)
  Receive Date: 20230103
  Receipt Date: 20230103
  Transmission Date: 20230418
  Serious: Yes (Hospitalization)
  Sender: FDA-Public Use
  Company Number: None

PATIENT
  Age: 64 Year
  Sex: Female

DRUGS (10)
  1. COSENTYX [Suspect]
     Active Substance: SECUKINUMAB
     Indication: Rheumatoid arthritis
     Route: 058
     Dates: start: 20220315
  2. ATORVASTATIN [Concomitant]
     Active Substance: ATORVASTATIN
  3. CLOTRIMAZOLE TRO [Concomitant]
  4. DEXAMETHASON SOL [Concomitant]
  5. FLUOXETINE CAP [Concomitant]
  6. LEVOTHYROXIN TAB [Concomitant]
  7. LISINOPRIL [Concomitant]
     Active Substance: LISINOPRIL
  8. METFORMIN TAB [Concomitant]
  9. METOPROL SUC TAB [Concomitant]
  10. QVAR REDIHA AER [Concomitant]

REACTIONS (2)
  - Infection [None]
  - Therapy interrupted [None]

NARRATIVE: CASE EVENT DATE: 20221212
